FAERS Safety Report 20718743 (Version 1)
Quarter: 2022Q2

REPORT INFORMATION
  Report Type: Spontaneous
  Country: GB (occurrence: GB)
  Receive Date: 20220418
  Receipt Date: 20220418
  Transmission Date: 20220721
  Serious: Yes (Other)
  Sender: FDA-Public Use
  Company Number: GB-ALNYLAM PHARMACEUTICALS, INC.-ALN-2022-001274

PATIENT

DRUGS (1)
  1. ONPATTRO [Suspect]
     Active Substance: PATISIRAN SODIUM
     Indication: Amyloidosis
     Dosage: 17 MILLILITER, Q3W
     Route: 042

REACTIONS (2)
  - Nausea [Unknown]
  - Fatigue [Unknown]
